FAERS Safety Report 11058972 (Version 1)
Quarter: 2015Q2

REPORT INFORMATION
  Report Type: Spontaneous
  Country: US (occurrence: None)
  Receive Date: 20150422
  Receipt Date: 20150422
  Transmission Date: 20150821
  Serious: No
  Sender: FDA-Public Use
  Company Number: None

PATIENT
  Age: 68 Year
  Sex: Female
  Weight: 63.5 kg

DRUGS (6)
  1. COENZYME Q10 [Concomitant]
     Active Substance: UBIDECARENONE
  2. ASPIRIN. [Concomitant]
     Active Substance: ASPIRIN
  3. BIOTIN [Concomitant]
     Active Substance: BIOTIN
  4. LETROZOLE. [Suspect]
     Active Substance: LETROZOLE
     Indication: BREAST CANCER RECURRENT
     Dosage: ONE TABLET ONCE DAILY TAKEN BY MOUTH
     Route: 048
     Dates: start: 20150110, end: 20150206
  5. VITAMIN D [Concomitant]
     Active Substance: CHOLECALCIFEROL
  6. ATORVASTATIN [Concomitant]
     Active Substance: ATORVASTATIN

REACTIONS (3)
  - Mental disorder [None]
  - Product substitution issue [None]
  - Female sexual arousal disorder [None]

NARRATIVE: CASE EVENT DATE: 20150112
